FAERS Safety Report 12378965 (Version 8)
Quarter: 2016Q3

REPORT INFORMATION
  Report Type: Spontaneous
  Country: US (occurrence: US)
  Receive Date: 20160517
  Receipt Date: 20160912
  Transmission Date: 20161109
  Serious: Yes (Hospitalization, Other)
  Sender: FDA-Public Use
  Company Number: US-GILEAD-2015-0175816

PATIENT
  Age: 66 Year
  Sex: Female

DRUGS (34)
  1. FLOLAN [Suspect]
     Active Substance: EPOPROSTENOL SODIUM
     Dosage: 17 NG/KG/M CONTINUOUSLY, CONCENTRATION: 45,000 NG/ML, VIAL STRENGTH: 1.5 MG, PUMP RATE: 50 ML/DAY
     Route: 042
     Dates: start: 19991223
  2. FLOLAN [Suspect]
     Active Substance: EPOPROSTENOL SODIUM
     Dosage: 17 NG/KG/MIN CONTINUOUSLY
     Route: 065
  3. FLOLAN [Suspect]
     Active Substance: EPOPROSTENOL SODIUM
     Dosage: 17 NG/KG/MIN CONTINUOUSLY
     Route: 065
  4. FLOLAN [Suspect]
     Active Substance: EPOPROSTENOL SODIUM
     Dosage: 17 NG/KG/M CONTINUOUSLY, CONCENTRATION: 45,000 NG/ML, VIAL STRENGTH: 1.5 MG, PUMP RATE: 50 ML/DAY
     Route: 042
  5. PREDNISONE. [Suspect]
     Active Substance: PREDNISONE
     Dosage: UNK, U
     Route: 065
  6. HYDROCODONE [Concomitant]
     Active Substance: HYDROCODONE
     Dosage: 10 MG EVERY FOUR HOURS
  7. CARDIZEM [Concomitant]
     Active Substance: DILTIAZEM HYDROCHLORIDE
  8. FLOLAN [Suspect]
     Active Substance: EPOPROSTENOL SODIUM
     Dosage: 17NG/KG/MIN (CONCENTRATION 45,000 NG/ML, PUMP RATE 50 ML/DAY, VIAL STRENGTH 1.5 MG/ML) CO
     Route: 042
     Dates: start: 20070131
  9. FLOLAN [Suspect]
     Active Substance: EPOPROSTENOL SODIUM
     Dosage: 17 NG/KG/MIN (CONCENTRATION 45,000 NG/ML, PUMP RATE 50 ML/DAY, VIAL STRENGTH 1.5 MG), CO
     Route: 042
  10. PREDNISONE. [Suspect]
     Active Substance: PREDNISONE
     Indication: PRODUCT USED FOR UNKNOWN INDICATION
     Dosage: UNK, U
     Route: 065
  11. HYDROCODONE [Concomitant]
     Active Substance: HYDROCODONE
     Dosage: 10 MG EVERY FOUR HOURS
  12. AMBRISENTAN [Suspect]
     Active Substance: AMBRISENTAN
     Indication: PRODUCT USED FOR UNKNOWN INDICATION
     Dosage: 10 MG, UNK
     Route: 065
     Dates: start: 20150923
  13. FLOLAN [Suspect]
     Active Substance: EPOPROSTENOL SODIUM
     Dosage: 17 NG/KG/MIN CONTINUOUSLY
     Route: 065
  14. FLOLAN [Suspect]
     Active Substance: EPOPROSTENOL SODIUM
     Dosage: 17 NG/KG/MG CO CONCENTRATION: 45,000 NG/ML, VIAL STRENGTH: 1.5 MG, PUMP RATE: 50 ML/DAY
     Route: 042
  15. FLOLAN [Suspect]
     Active Substance: EPOPROSTENOL SODIUM
     Dosage: 17 NG/KG/MIN CONTINUOUSLY
  16. FLOLAN [Suspect]
     Active Substance: EPOPROSTENOL SODIUM
     Indication: PULMONARY ARTERIAL HYPERTENSION
  17. INTRAVENOUS IMMUNOGLOBULIN [Suspect]
     Active Substance: HUMAN IMMUNOGLOBULIN G
     Indication: PRODUCT USED FOR UNKNOWN INDICATION
     Dosage: UNK, U
     Route: 042
  18. FLOLAN [Suspect]
     Active Substance: EPOPROSTENOL SODIUM
     Dosage: 17 NG/KG/MIN CONTINUOUSLY
  19. FLOLAN [Suspect]
     Active Substance: EPOPROSTENOL SODIUM
     Dosage: 17 NG/KG/MIN CONTINUOUSLY
  20. FLOLAN [Suspect]
     Active Substance: EPOPROSTENOL SODIUM
     Dosage: 17 NG/KG/MIN (CONCENTRATION 45,000 NG/ML, PUMP RATE 50 ML/DAY, VIAL STRENGTH 1.5 MG), CO
     Route: 042
  21. FLOLAN [Suspect]
     Active Substance: EPOPROSTENOL SODIUM
     Dosage: UNK
     Route: 065
  22. FLOLAN [Suspect]
     Active Substance: EPOPROSTENOL SODIUM
     Dosage: 17 NG/KG/MIN CONTINUOUSLY
  23. HYDROCODONE [Concomitant]
     Active Substance: HYDROCODONE
     Dosage: 10 MG EVERY FOUR HOURS
  24. FLOLAN [Suspect]
     Active Substance: EPOPROSTENOL SODIUM
     Dosage: 17 NG/KG/M CONTINUOUSLY, CONCENTRATION: 45,000 NG/ML, VIAL STRENGTH: 1.5 MG, PUMP RATE: 50 ML/DAY
     Route: 042
  25. FLOLAN [Suspect]
     Active Substance: EPOPROSTENOL SODIUM
     Dosage: 17 NG/KG/MG CO CONCENTRATION: 45,000 NG/ML, VIAL STRENGTH: 1.5 MG, PUMP RATE: 50 ML/DAY
     Route: 042
  26. FLOLAN [Suspect]
     Active Substance: EPOPROSTENOL SODIUM
     Dosage: 17NG/KG/MIN (CONCENTRATION 45,000 NG/ML, PUMP RATE 50 ML/DAY, VIAL STRENGTH 1.5 MG/ML) CO
     Route: 042
  27. DANAZOL. [Suspect]
     Active Substance: DANAZOL
     Indication: PRODUCT USED FOR UNKNOWN INDICATION
  28. AMOXICILLIN. [Concomitant]
     Active Substance: AMOXICILLIN
  29. FLOLAN [Suspect]
     Active Substance: EPOPROSTENOL SODIUM
     Indication: PULMONARY ARTERIAL HYPERTENSION
     Dosage: 17 NG/KG/MIN CONTINUOUSLY17 NG/KG/MIN CONTINUOUSLY, CONCENTRATION: 45,000 NG/ML, 50 ML PER DAY [...]
     Route: 042
     Dates: start: 19991022
  30. FLOLAN [Suspect]
     Active Substance: EPOPROSTENOL SODIUM
     Dosage: 17 NG/KG/MIN CONTINUOUSLY
     Route: 065
  31. PREDNISONE. [Suspect]
     Active Substance: PREDNISONE
     Dosage: UNK, U
     Route: 065
  32. FLOLAN [Suspect]
     Active Substance: EPOPROSTENOL SODIUM
     Dosage: 17NG/KG/MIN (CONCENTRATION 45,000 NG/ML, PUMP RATE 50 ML/DAY, VIAL STRENGTH 1.5 MG/ML) CO
     Route: 042
  33. PREDNISONE. [Suspect]
     Active Substance: PREDNISONE
     Dosage: UNK, U
     Route: 065
  34. OXYCODONE [Suspect]
     Active Substance: OXYCODONE
     Indication: PRODUCT USED FOR UNKNOWN INDICATION
     Route: 065

REACTIONS (13)
  - Hepatic cirrhosis [Unknown]
  - Medication overuse headache [Unknown]
  - Platelet disorder [Unknown]
  - Platelet count decreased [Unknown]
  - Migraine [Unknown]
  - Rash [Recovered/Resolved]
  - Head discomfort [Unknown]
  - Pain [Unknown]
  - Vibratory sense increased [Unknown]
  - Pain in extremity [Unknown]
  - Headache [Unknown]
  - Tooth infection [Not Recovered/Not Resolved]
  - Back pain [Unknown]
